FAERS Safety Report 25028542 (Version 2)
Quarter: 2025Q1

REPORT INFORMATION
  Report Type: Spontaneous
  Country: NL (occurrence: NL)
  Receive Date: 20250302
  Receipt Date: 20250316
  Transmission Date: 20250409
  Serious: Yes (Life-Threatening, Other)
  Sender: AUROBINDO
  Company Number: NL-LRB-01037882

PATIENT
  Age: 89 Year
  Sex: Male
  Weight: 68 kg

DRUGS (7)
  1. OXYCODONE [Suspect]
     Active Substance: OXYCODONE
     Indication: Back pain
     Dosage: 5 MILLIGRAM, TWO TIMES A DAY [2X PER DAG 1 STUK]
     Route: 048
     Dates: start: 20250207, end: 20250207
  2. OMEPRAZOLE [Concomitant]
     Active Substance: OMEPRAZOLE
     Indication: Product used for unknown indication
     Route: 048
  3. RIVAROXABAN [Concomitant]
     Active Substance: RIVAROXABAN
     Indication: Product used for unknown indication
     Route: 048
  4. HERBALS\PLANTAGO OVATA LEAF [Concomitant]
     Active Substance: HERBALS\PLANTAGO OVATA LEAF
     Indication: Product used for unknown indication
     Route: 048
  5. CALCIUM\VITAMIN D [Concomitant]
     Active Substance: CALCIUM\VITAMIN D
     Indication: Product used for unknown indication
     Route: 048
  6. HALOPERIDOL [Concomitant]
     Active Substance: HALOPERIDOL
     Indication: Product used for unknown indication
     Route: 048
  7. ACETAMINOPHEN [Concomitant]
     Active Substance: ACETAMINOPHEN
     Indication: Product used for unknown indication
     Route: 048

REACTIONS (4)
  - Apnoea [Recovering/Resolving]
  - Sedation [Recovering/Resolving]
  - Miosis [Recovering/Resolving]
  - Toxicity to various agents [Recovering/Resolving]
